FAERS Safety Report 5018935-8 (Version None)
Quarter: 2006Q2

REPORT INFORMATION
  Report Type: 
  Country: None (occurrence: None)
  Receive Date: 20060606
  Receipt Date: 20060426
  Transmission Date: 20061013
  Serious: Yes (Disabling)
  Sender: FDA-Public Use
  Company Number: 2006CG00761

PATIENT
  Age: 18532 Day
  Sex: Male
  Weight: 80 kg

DRUGS (4)
  1. CRESTOR [Suspect]
     Indication: HYPERCHOLESTEROLAEMIA
     Route: 048
     Dates: start: 20060414, end: 20060401
  2. NEXIUM [Concomitant]
     Indication: PROPHYLAXIS AGAINST GASTROINTESTINAL ULCER
     Route: 048
  3. VOLTAREN [Concomitant]
     Indication: NECK PAIN
  4. DOLIPRANE [Concomitant]

REACTIONS (5)
  - BINOCULAR EYE MOVEMENT DISORDER [None]
  - DIPLOPIA [None]
  - EXTRAOCULAR MUSCLE DISORDER [None]
  - HETEROPHORIA [None]
  - ROAD TRAFFIC ACCIDENT [None]
